FAERS Safety Report 16788596 (Version 1)
Quarter: 2019Q3

REPORT INFORMATION
  Report Type: Spontaneous
  Country: JP (occurrence: JP)
  Receive Date: 20190910
  Receipt Date: 20190910
  Transmission Date: 20191005
  Serious: Yes (Hospitalization, Other)
  Sender: FDA-Public Use
  Company Number: JP-ABBVIE-19K-087-2910145-00

PATIENT
  Age: 67 Year
  Sex: Male
  Weight: 58 kg

DRUGS (25)
  1. RHEUMATREX [Suspect]
     Active Substance: METHOTREXATE SODIUM
     Indication: RHEUMATOID ARTHRITIS
     Route: 048
     Dates: end: 20161106
  2. PREDNISOLONE. [Concomitant]
     Active Substance: PREDNISOLONE
     Route: 048
     Dates: start: 20170704, end: 20170717
  3. PREDNISOLONE. [Concomitant]
     Active Substance: PREDNISOLONE
     Route: 048
     Dates: start: 20170801, end: 20170828
  4. PREDNISOLONE. [Concomitant]
     Active Substance: PREDNISOLONE
     Route: 048
     Dates: start: 20170829, end: 20170925
  5. PREDNISOLONE. [Concomitant]
     Active Substance: PREDNISOLONE
     Indication: RHEUMATOID ARTHRITIS
     Route: 048
     Dates: start: 2016, end: 20160606
  6. PREDNISOLONE. [Concomitant]
     Active Substance: PREDNISOLONE
     Route: 048
     Dates: start: 20160913, end: 20161107
  7. PREDNISOLONE. [Concomitant]
     Active Substance: PREDNISOLONE
     Route: 048
     Dates: start: 20161220, end: 20170508
  8. PREDNISOLONE. [Concomitant]
     Active Substance: PREDNISOLONE
     Route: 048
     Dates: start: 20170606, end: 20170619
  9. PREDNISOLONE. [Concomitant]
     Active Substance: PREDNISOLONE
     Route: 048
     Dates: start: 20170926, end: 20171023
  10. HUMIRA [Suspect]
     Active Substance: ADALIMUMAB
     Indication: PRODUCT USED FOR UNKNOWN INDICATION
     Route: 058
     Dates: start: 20160509, end: 20170508
  11. RHEUMATREX [Suspect]
     Active Substance: METHOTREXATE SODIUM
     Route: 048
     Dates: start: 20161107, end: 20170130
  12. PROGRAF [Suspect]
     Active Substance: TACROLIMUS\TACROLIMUS ANHYDROUS
     Route: 048
     Dates: start: 20180305, end: 20180528
  13. PREDNISOLONE. [Concomitant]
     Active Substance: PREDNISOLONE
     Route: 048
     Dates: start: 20170523, end: 20170605
  14. PREDNISOLONE. [Concomitant]
     Active Substance: PREDNISOLONE
     Route: 048
     Dates: start: 20170620, end: 20170703
  15. PREDNISOLONE. [Concomitant]
     Active Substance: PREDNISOLONE
     Route: 048
     Dates: start: 20170718, end: 20170731
  16. PREDNISOLONE. [Concomitant]
     Active Substance: PREDNISOLONE
     Route: 048
     Dates: start: 20160705, end: 20160801
  17. PREDNISOLONE. [Concomitant]
     Active Substance: PREDNISOLONE
     Route: 048
     Dates: start: 20160802, end: 20160912
  18. PREDNISOLONE. [Concomitant]
     Active Substance: PREDNISOLONE
     Route: 048
     Dates: start: 20171024, end: 20171120
  19. PREDNISOLONE. [Concomitant]
     Active Substance: PREDNISOLONE
     Route: 048
     Dates: start: 20160607, end: 20160704
  20. TRIMETHOPRIM. [Concomitant]
     Active Substance: TRIMETHOPRIM
     Indication: PRODUCT USED FOR UNKNOWN INDICATION
  21. PROGRAF [Suspect]
     Active Substance: TACROLIMUS\TACROLIMUS ANHYDROUS
     Indication: DERMATOMYOSITIS
     Route: 048
     Dates: start: 20170522, end: 20180528
  22. PREDNISOLONE. [Concomitant]
     Active Substance: PREDNISOLONE
     Route: 048
     Dates: start: 20161108, end: 20161219
  23. SULFAMETHOXAZOLE [Concomitant]
     Active Substance: SULFAMETHOXAZOLE
     Indication: PRODUCT USED FOR UNKNOWN INDICATION
  24. PREDNISOLONE. [Concomitant]
     Active Substance: PREDNISOLONE
     Route: 048
     Dates: start: 20170509, end: 20170522
  25. PREDNISOLONE. [Concomitant]
     Active Substance: PREDNISOLONE
     Route: 048
     Dates: start: 20171121, end: 20171218

REACTIONS (11)
  - Lymphadenopathy [Recovered/Resolved]
  - Rash [Recovering/Resolving]
  - Lymphoproliferative disorder [Recovered/Resolved]
  - Dermatomyositis [Recovered/Resolved]
  - Erythema [Recovering/Resolving]
  - Hodgkin^s disease [Recovering/Resolving]
  - Dermatomyositis [Recovering/Resolving]
  - Decreased appetite [Unknown]
  - Pneumocystis jirovecii pneumonia [Recovering/Resolving]
  - Asthenia [Unknown]
  - Immune system disorder [Unknown]

NARRATIVE: CASE EVENT DATE: 20161222
